FAERS Safety Report 23049888 (Version 1)
Quarter: 2023Q4

REPORT INFORMATION
  Report Type: Spontaneous
  Country: CA (occurrence: CA)
  Receive Date: 20231010
  Receipt Date: 20231010
  Transmission Date: 20240110
  Serious: Yes (Hospitalization)
  Sender: FDA-Public Use
  Company Number: CA-FreseniusKabi-FK202315760

PATIENT
  Age: 74 Year
  Sex: Female
  Weight: 96 kg

DRUGS (14)
  1. VANCOMYCIN [Suspect]
     Active Substance: VANCOMYCIN
     Indication: Endocarditis bacterial
     Dosage: DOSAGE FORM: NOT SPECIFIED
     Route: 042
  2. VANCOMYCIN [Suspect]
     Active Substance: VANCOMYCIN
     Dosage: DOSAGE FORM: NOT SPECIFIED?FREQUENCY: ONCE
     Route: 042
  3. LINAGLIPTIN [Concomitant]
     Active Substance: LINAGLIPTIN
     Indication: Product used for unknown indication
  4. RIFAMPIN [Concomitant]
     Active Substance: RIFAMPIN
     Indication: Product used for unknown indication
  5. NOVORAPID [Concomitant]
     Active Substance: INSULIN ASPART
     Indication: Product used for unknown indication
     Dosage: DOSAGE FORM: SOLUTION SUBCUTANEOUS
  6. METOPROLOL [Concomitant]
     Active Substance: METOPROLOL
     Indication: Product used for unknown indication
     Dosage: DOSAGE FORM: NOT SPECIFIED
  7. IRBESARTAN [Concomitant]
     Active Substance: IRBESARTAN
     Indication: Product used for unknown indication
     Route: 065
  8. HEPARIN SODIUM [Concomitant]
     Active Substance: HEPARIN SODIUM
     Indication: Product used for unknown indication
     Dosage: DOSAGE FORM: SOLUTION INTRAVENOUS
  9. GENTAMICIN [Concomitant]
     Active Substance: GENTAMICIN
     Indication: Product used for unknown indication
     Dosage: DOSAGE FORM: DROPS
  10. ELIQUIS [Concomitant]
     Active Substance: APIXABAN
     Indication: Product used for unknown indication
  11. CIPRO [Concomitant]
     Active Substance: CIPROFLOXACIN HYDROCHLORIDE
     Indication: Product used for unknown indication
  12. ceftriaxone  FOR INJECTION USP [Concomitant]
     Indication: Product used for unknown indication
     Dosage: DOSAGE FORM: POWDER FOR SOLUTION INTRAMUSCULAR
  13. ceftriaxone  FOR INJECTION USP [Concomitant]
     Indication: Product used for unknown indication
     Dosage: DOSAGE FORM: POWDER FOR SOLUTION INTRAMUSCULAR
  14. ATIVAN [Concomitant]
     Active Substance: LORAZEPAM
     Indication: Product used for unknown indication
     Dosage: DOSAGE FORM: NOT SPECIFIED

REACTIONS (1)
  - Acute kidney injury [Recovering/Resolving]
